FAERS Safety Report 5249398-5 (Version None)
Quarter: 2007Q1

REPORT INFORMATION
  Report Type: 
  Country: None (occurrence: None)
  Receive Date: 20070228
  Receipt Date: 20061003
  Transmission Date: 20070707
  Serious: No
  Sender: FDA-Public Use
  Company Number: US-GLAXOSMITHKLINE-A0622309A

PATIENT
  Age: 48 Year
  Sex: Female

DRUGS (4)
  1. VALTREX [Suspect]
     Dosage: 500MG PER DAY
     Route: 048
  2. HYDROCHLOROTHIAZIDE [Concomitant]
  3. ACCUPRIL [Concomitant]
  4. DETROL [Concomitant]

REACTIONS (5)
  - DYSURIA [None]
  - GENITAL ERYTHEMA [None]
  - HERPES SIMPLEX [None]
  - PARAESTHESIA [None]
  - VULVOVAGINAL DRYNESS [None]
